FAERS Safety Report 15789560 (Version 1)
Quarter: 2019Q1

REPORT INFORMATION
  Report Type: Spontaneous
  Country: US (occurrence: US)
  Receive Date: 20190103
  Receipt Date: 20190103
  Transmission Date: 20190417
  Serious: Yes (Other)
  Sender: FDA-Public Use
  Company Number: None

PATIENT
  Age: 29 Year
  Sex: Female
  Weight: 67.5 kg

DRUGS (5)
  1. WOMEN^S 1 A DAY MULTIVTIAMIN [Concomitant]
  2. CLONAZEPAM. [Concomitant]
     Active Substance: CLONAZEPAM
  3. TRAZODONE [Concomitant]
     Active Substance: TRAZODONE HYDROCHLORIDE
  4. DULOXETINE DR 60 MG CAPSULES [Suspect]
     Active Substance: DULOXETINE HYDROCHLORIDE
     Indication: MAJOR DEPRESSION
     Dosage: ?          QUANTITY:2 CAPSULE(S);?
     Route: 048
  5. CALCIUM [Concomitant]
     Active Substance: CALCIUM

REACTIONS (2)
  - Drug withdrawal syndrome [None]
  - Psychological trauma [None]

NARRATIVE: CASE EVENT DATE: 20180507
